FAERS Safety Report 9536970 (Version 4)
Quarter: 2013Q3

REPORT INFORMATION
  Report Type: Report from Study
  Country: AU (occurrence: AU)
  Receive Date: 20130919
  Receipt Date: 20130924
  Transmission Date: 20140515
  Serious: Yes (Other)
  Sender: FDA-Public Use
  Company Number: AU-ROCHE-1253136

PATIENT
  Age: 68 Year
  Sex: Female

DRUGS (19)
  1. ACTEMRA [Suspect]
     Indication: RHEUMATOID ARTHRITIS
     Dosage: 80 MG/4ML
     Route: 042
     Dates: start: 20110207
  2. COVERSYL PLUS (AUSTRALIA) [Concomitant]
  3. NOTEN [Concomitant]
  4. ACTILAX [Concomitant]
     Dosage: 3.34 G/5 ML, 15 - 30 ML DAILY PRN
     Route: 065
  5. CARTIA (AUSTRALIA) [Concomitant]
     Dosage: 5 MG/1.25 MG
     Route: 065
  6. CRESTOR [Concomitant]
     Route: 065
  7. HIRUDOID (AUSTRALIA) [Concomitant]
     Dosage: 3 MG/G
     Route: 065
  8. MEGAFOL [Concomitant]
     Dosage: 5MG 2 EVERY MONDAY
     Route: 065
  9. MOBIC [Concomitant]
     Route: 065
  10. NEXIUM [Concomitant]
     Route: 065
  11. NITROLINGUAL SPRAY [Concomitant]
     Dosage: 1 SPRAY UNDER TONGUE FOR CHEST PAIN
     Route: 065
  12. PANADEINE FORTE [Concomitant]
     Dosage: 2 TABLETS
     Route: 065
  13. RANI [Concomitant]
     Route: 065
  14. TEMAZE [Concomitant]
     Route: 065
  15. VALIUM [Concomitant]
     Route: 065
  16. METHOTREXATE [Concomitant]
     Dosage: 10 MG 2 EVERY WEDNESDAY
     Route: 065
  17. PREDNISOLONE [Concomitant]
     Route: 065
  18. ENDEP [Concomitant]
     Route: 065
  19. CODEINE/ACETAMINOPHEN [Concomitant]
     Route: 065

REACTIONS (4)
  - Anaemia [Not Recovered/Not Resolved]
  - Occult blood positive [Not Recovered/Not Resolved]
  - Arthralgia [Unknown]
  - Dyspnoea [Unknown]
